FAERS Safety Report 14392313 (Version 2)
Quarter: 2018Q1

REPORT INFORMATION
  Report Type: Spontaneous
  Country: JP (occurrence: JP)
  Receive Date: 20180116
  Receipt Date: 20180315
  Transmission Date: 20180509
  Serious: Yes (Other)
  Sender: FDA-Public Use
  Company Number: JP-GLAXOSMITHKLINE-JP2018JPN005110

PATIENT
  Age: 19 Year
  Sex: Female

DRUGS (3)
  1. VALTREX [Suspect]
     Active Substance: VALACYCLOVIR HYDROCHLORIDE
     Indication: HERPES ZOSTER
     Dosage: UNK
     Route: 048
     Dates: start: 201710, end: 20171214
  2. MIGSIS [Concomitant]
     Active Substance: LOMERIZINE HYDROCHLORIDE
     Indication: HEADACHE
     Dosage: UNK
     Dates: start: 201710, end: 20171214
  3. TEPRENONE [Concomitant]
     Active Substance: TEPRENONE
     Indication: HEADACHE
     Dosage: UNK
     Dates: start: 201710, end: 20171214

REACTIONS (2)
  - Incorrect drug administration duration [Unknown]
  - Muscular weakness [Recovering/Resolving]

NARRATIVE: CASE EVENT DATE: 201710
